FAERS Safety Report 26074933 (Version 1)
Quarter: 2025Q4

REPORT INFORMATION
  Report Type: Spontaneous
  Country: IN (occurrence: IN)
  Receive Date: 20251121
  Receipt Date: 20251121
  Transmission Date: 20260118
  Serious: Yes (Death, Other)
  Sender: MYLAN
  Company Number: IN-MYLANLABS-2025M1098729

PATIENT
  Age: 37 Year
  Sex: Male

DRUGS (32)
  1. TACROLIMUS [Suspect]
     Active Substance: TACROLIMUS
     Indication: Immunosuppressant drug therapy
     Dosage: UNK, MAINTENANCE THERAPY, INITIALLY IMMUNOSUPPRESSIVE THERAPY WAS REDUCED, LATER NOT APPLICABLE AS PATIENT DIED
  2. TACROLIMUS [Suspect]
     Active Substance: TACROLIMUS
     Dosage: UNK, MAINTENANCE THERAPY, INITIALLY IMMUNOSUPPRESSIVE THERAPY WAS REDUCED, LATER NOT APPLICABLE AS PATIENT DIED
  3. TACROLIMUS [Suspect]
     Active Substance: TACROLIMUS
     Dosage: UNK, MAINTENANCE THERAPY, INITIALLY IMMUNOSUPPRESSIVE THERAPY WAS REDUCED, LATER NOT APPLICABLE AS PATIENT DIED
     Route: 065
  4. TACROLIMUS [Suspect]
     Active Substance: TACROLIMUS
     Dosage: UNK, MAINTENANCE THERAPY, INITIALLY IMMUNOSUPPRESSIVE THERAPY WAS REDUCED, LATER NOT APPLICABLE AS PATIENT DIED
     Route: 065
  5. TACROLIMUS [Suspect]
     Active Substance: TACROLIMUS
     Dosage: UNK, IMMUNOSUPPRESSIVE THERAPY WAS REDUCED
  6. TACROLIMUS [Suspect]
     Active Substance: TACROLIMUS
     Dosage: UNK, IMMUNOSUPPRESSIVE THERAPY WAS REDUCED
  7. TACROLIMUS [Suspect]
     Active Substance: TACROLIMUS
     Dosage: UNK, IMMUNOSUPPRESSIVE THERAPY WAS REDUCED
     Route: 065
  8. TACROLIMUS [Suspect]
     Active Substance: TACROLIMUS
     Dosage: UNK, IMMUNOSUPPRESSIVE THERAPY WAS REDUCED
     Route: 065
  9. MYCOPHENOLATE MOFETIL [Suspect]
     Active Substance: MYCOPHENOLATE MOFETIL
     Indication: Immunosuppressant drug therapy
     Dosage: UNK, MAINTENANCE THERAPY
  10. MYCOPHENOLATE MOFETIL [Suspect]
     Active Substance: MYCOPHENOLATE MOFETIL
     Dosage: UNK, MAINTENANCE THERAPY
  11. MYCOPHENOLATE MOFETIL [Suspect]
     Active Substance: MYCOPHENOLATE MOFETIL
     Dosage: UNK, MAINTENANCE THERAPY
     Route: 065
  12. MYCOPHENOLATE MOFETIL [Suspect]
     Active Substance: MYCOPHENOLATE MOFETIL
     Dosage: UNK, MAINTENANCE THERAPY
     Route: 065
  13. MYCOPHENOLATE MOFETIL [Suspect]
     Active Substance: MYCOPHENOLATE MOFETIL
     Dosage: UNK, IMMUNOSUPPRESSIVE THERAPY WAS REDUCED
  14. MYCOPHENOLATE MOFETIL [Suspect]
     Active Substance: MYCOPHENOLATE MOFETIL
     Dosage: UNK, IMMUNOSUPPRESSIVE THERAPY WAS REDUCED
  15. MYCOPHENOLATE MOFETIL [Suspect]
     Active Substance: MYCOPHENOLATE MOFETIL
     Dosage: UNK, IMMUNOSUPPRESSIVE THERAPY WAS REDUCED
     Route: 065
  16. MYCOPHENOLATE MOFETIL [Suspect]
     Active Substance: MYCOPHENOLATE MOFETIL
     Dosage: UNK, IMMUNOSUPPRESSIVE THERAPY WAS REDUCED
     Route: 065
  17. THYMOGLOBULIN [Suspect]
     Active Substance: LAPINE T-LYMPHOCYTE IMMUNE GLOBULIN
     Indication: Immunosuppressant drug therapy
     Dosage: UNK, INDUCTION THERAPY
  18. THYMOGLOBULIN [Suspect]
     Active Substance: LAPINE T-LYMPHOCYTE IMMUNE GLOBULIN
     Dosage: UNK, INDUCTION THERAPY
  19. THYMOGLOBULIN [Suspect]
     Active Substance: LAPINE T-LYMPHOCYTE IMMUNE GLOBULIN
     Dosage: UNK, INDUCTION THERAPY
     Route: 065
  20. THYMOGLOBULIN [Suspect]
     Active Substance: LAPINE T-LYMPHOCYTE IMMUNE GLOBULIN
     Dosage: UNK, INDUCTION THERAPY
     Route: 065
  21. THYMOGLOBULIN [Suspect]
     Active Substance: LAPINE T-LYMPHOCYTE IMMUNE GLOBULIN
     Dosage: UNK, IMMUNOSUPPRESSIVE THERAPY WAS REDUCED
  22. THYMOGLOBULIN [Suspect]
     Active Substance: LAPINE T-LYMPHOCYTE IMMUNE GLOBULIN
     Dosage: UNK, IMMUNOSUPPRESSIVE THERAPY WAS REDUCED
  23. THYMOGLOBULIN [Suspect]
     Active Substance: LAPINE T-LYMPHOCYTE IMMUNE GLOBULIN
     Dosage: UNK, IMMUNOSUPPRESSIVE THERAPY WAS REDUCED
     Route: 065
  24. THYMOGLOBULIN [Suspect]
     Active Substance: LAPINE T-LYMPHOCYTE IMMUNE GLOBULIN
     Dosage: UNK, IMMUNOSUPPRESSIVE THERAPY WAS REDUCED
     Route: 065
  25. PREDNISONE [Suspect]
     Active Substance: PREDNISONE
     Indication: Immunosuppressant drug therapy
     Dosage: UNK, MAINTENANCE THERAPY
  26. PREDNISONE [Suspect]
     Active Substance: PREDNISONE
     Dosage: UNK, MAINTENANCE THERAPY
  27. PREDNISONE [Suspect]
     Active Substance: PREDNISONE
     Dosage: UNK, MAINTENANCE THERAPY
     Route: 065
  28. PREDNISONE [Suspect]
     Active Substance: PREDNISONE
     Dosage: UNK, MAINTENANCE THERAPY
     Route: 065
  29. PREDNISONE [Suspect]
     Active Substance: PREDNISONE
     Dosage: UNK, IMMUNOSUPPRESSIVE THERAPY WAS REDUCED
  30. PREDNISONE [Suspect]
     Active Substance: PREDNISONE
     Dosage: UNK, IMMUNOSUPPRESSIVE THERAPY WAS REDUCED
  31. PREDNISONE [Suspect]
     Active Substance: PREDNISONE
     Dosage: UNK, IMMUNOSUPPRESSIVE THERAPY WAS REDUCED
     Route: 065
  32. PREDNISONE [Suspect]
     Active Substance: PREDNISONE
     Dosage: UNK, IMMUNOSUPPRESSIVE THERAPY WAS REDUCED
     Route: 065

REACTIONS (2)
  - Malignant fibrous histiocytoma [Fatal]
  - Drug ineffective [Unknown]

NARRATIVE: CASE EVENT DATE: 20210101
